FAERS Safety Report 23504016 (Version 1)
Quarter: 2024Q1

REPORT INFORMATION
  Report Type: Spontaneous
  Country: US (occurrence: None)
  Receive Date: 20240208
  Receipt Date: 20240208
  Transmission Date: 20240409
  Serious: Yes (Hospitalization, Disabling)
  Sender: FDA-Public Use
  Company Number: None

PATIENT
  Age: 54 Year
  Sex: Female
  Weight: 85.05 kg

DRUGS (1)
  1. BREXPIPRAZOLE [Suspect]
     Active Substance: BREXPIPRAZOLE
     Indication: Depression
     Dosage: 1 TABLET ORAL
     Route: 048
     Dates: start: 20230607, end: 20230621

REACTIONS (11)
  - Dyskinesia [None]
  - Tardive dyskinesia [None]
  - Grunting [None]
  - Repetitive speech [None]
  - Dysphemia [None]
  - Therapy cessation [None]
  - Cognitive disorder [None]
  - Impaired work ability [None]
  - Impaired driving ability [None]
  - Quality of life decreased [None]
  - Product complaint [None]

NARRATIVE: CASE EVENT DATE: 20230621
